FAERS Safety Report 23564357 (Version 1)
Quarter: 2024Q1

REPORT INFORMATION
  Report Type: Spontaneous
  Country: PL (occurrence: PL)
  Receive Date: 20240226
  Receipt Date: 20240226
  Transmission Date: 20240409
  Serious: Yes (Other)
  Sender: FDA-Public Use
  Company Number: None

PATIENT
  Age: 62 Year
  Sex: Female
  Weight: 61 kg

DRUGS (2)
  1. FLUOROURACIL [Suspect]
     Active Substance: FLUOROURACIL
     Indication: Colon cancer
     Dates: start: 20191216, end: 20191218
  2. OXALIPLATIN [Suspect]
     Active Substance: OXALIPLATIN
     Indication: Colon cancer
     Dates: start: 20191216, end: 20191216

REACTIONS (3)
  - Thrombocytopenia [Unknown]
  - Hepatotoxicity [Unknown]
  - Neutropenia [Unknown]

NARRATIVE: CASE EVENT DATE: 20191230
